FAERS Safety Report 7103376-X (Version None)
Quarter: 2010Q4

REPORT INFORMATION
  Report Type: 
  Country: None (occurrence: None)
  Receive Date: 20101115
  Receipt Date: 20101110
  Transmission Date: 20110411
  Serious: Yes (Death)
  Sender: FDA-Public Use
  Company Number: US-ASTRAZENECA-2010SE53527

PATIENT
  Age: 75 Year
  Sex: Male

DRUGS (5)
  1. SEROQUEL [Suspect]
     Indication: MAJOR DEPRESSION
     Route: 048
  2. ADVAIR DISKUS 100/50 [Concomitant]
  3. ALBUTEROL [Concomitant]
  4. COUMADIN [Concomitant]
  5. MULTITUDE OF OTHER MEDICATIONS [Concomitant]

REACTIONS (1)
  - DEATH [None]
